FAERS Safety Report 20682332 (Version 1)
Quarter: 2022Q2

REPORT INFORMATION
  Report Type: Spontaneous
  Country: US (occurrence: None)
  Receive Date: 20220407
  Receipt Date: 20220407
  Transmission Date: 20220721
  Serious: No
  Sender: FDA-Public Use
  Company Number: 2022A130482

PATIENT
  Sex: Female
  Weight: 49 kg

DRUGS (2)
  1. PULMICORT FLEXHALER [Suspect]
     Active Substance: BUDESONIDE
     Indication: COVID-19
     Dosage: 180 MCG 120 DOSES180.0UG UNKNOWN
     Route: 055
  2. PULMICORT FLEXHALER [Suspect]
     Active Substance: BUDESONIDE
     Indication: Lung operation
     Dosage: 180 MCG 120 DOSES180.0UG UNKNOWN
     Route: 055

REACTIONS (4)
  - Dyspnoea [Unknown]
  - Device ineffective [Unknown]
  - Device use issue [Unknown]
  - Device malfunction [Unknown]
